FAERS Safety Report 5402405-9 (Version None)
Quarter: 2007Q3

REPORT INFORMATION
  Report Type: 
  Country: None (occurrence: None)
  Receive Date: 20070730
  Receipt Date: 20070730
  Transmission Date: 20080115
  Serious: Yes (Hospitalization)
  Sender: FDA-Public Use
  Company Number: None

PATIENT
  Age: 28 Year
  Sex: Female
  Weight: 58.9676 kg

DRUGS (1)
  1. LEVAQUIN [Suspect]
     Indication: SINUSITIS
     Dosage: 500 MG  ONCE A DAY  PO  (10 DAY COURSE)
     Route: 048
     Dates: start: 20070725, end: 20070728

REACTIONS (7)
  - MALAISE [None]
  - MYALGIA [None]
  - NAUSEA [None]
  - PALLOR [None]
  - PALPITATIONS [None]
  - PRESYNCOPE [None]
  - SYNCOPE [None]
